FAERS Safety Report 10996583 (Version 1)
Quarter: 2015Q1

REPORT INFORMATION
  Report Type: Spontaneous
  Country: US (occurrence: None)
  Receive Date: 20150331
  Receipt Date: 20150331
  Transmission Date: 20150721
  Serious: Yes (Other)
  Sender: FDA-Public Use
  Company Number: PHEH2014US024893

PATIENT
  Age: 54 Year
  Sex: Female
  Weight: 84.5 kg

DRUGS (2)
  1. AFINITOR [Suspect]
     Active Substance: EVEROLIMUS
     Indication: BREAST CANCER
     Dates: start: 20141203
  2. EXEMESTANE (EXEMESTANE) TABLET [Suspect]
     Active Substance: EXEMESTANE
     Indication: BREAST CANCER
     Dates: start: 20141203

REACTIONS (4)
  - Stomatitis [None]
  - Mucosal inflammation [None]
  - Nasal oedema [None]
  - Epistaxis [None]

NARRATIVE: CASE EVENT DATE: 20141205
